FAERS Safety Report 4608069-6 (Version None)
Quarter: 2005Q2

REPORT INFORMATION
  Report Type: 
  Country: None (occurrence: None)
  Receive Date: 20050303
  Receipt Date: 20041105
  Transmission Date: 20051028
  Serious: No
  Sender: FDA-Public Use
  Company Number: 210247

PATIENT
  Age: 61 Year
  Sex: Female

DRUGS (14)
  1. XOLAIR [Suspect]
     Indication: ASTHMA
     Dosage: 275 MG, Q2W, SUBCUTANEOUS
     Route: 058
     Dates: start: 20040830, end: 20041028
  2. PROTONIX [Concomitant]
  3. PREMARIN [Concomitant]
  4. LISINOPRIL [Concomitant]
  5. LASIX [Concomitant]
  6. INSULIN [Concomitant]
  7. AMBIEN [Concomitant]
  8. ALLEGRA [Concomitant]
  9. PREDNISONE TAB [Concomitant]
  10. PULMICORT (BUDENOSIDE) [Concomitant]
  11. THEO-24 (THEOPHYLLINE) [Concomitant]
  12. SINGULAIR [Concomitant]
  13. AMITRIPTYLINE HCL [Concomitant]
  14. ACTONEL [Concomitant]

REACTIONS (2)
  - OEDEMA PERIPHERAL [None]
  - SWELLING FACE [None]
